FAERS Safety Report 7386853-6 (Version None)
Quarter: 2011Q1

REPORT INFORMATION
  Report Type: 
  Country: None (occurrence: None)
  Receive Date: 20110331
  Receipt Date: 20110330
  Transmission Date: 20110831
  Serious: Yes (Death, Congenital Anomaly)
  Sender: FDA-Public Use
  Company Number: US-JNJFOC-20101208618

PATIENT

DRUGS (5)
  1. DOXYLAMINE [Suspect]
     Indication: ILL-DEFINED DISORDER
  2. ACETAMINOPHEN [Suspect]
     Route: 015
  3. PROPOXYPHENE [Suspect]
     Indication: ILL-DEFINED DISORDER
  4. VITAMIN B6 [Suspect]
     Indication: ILL-DEFINED DISORDER
  5. ACETAMINOPHEN [Suspect]
     Indication: ILL-DEFINED DISORDER
     Route: 015

REACTIONS (3)
  - GENITOURINARY TRACT NEOPLASM [None]
  - JOINT DISLOCATION [None]
  - DEATH [None]
